FAERS Safety Report 7538455-6 (Version None)
Quarter: 2011Q2

REPORT INFORMATION
  Report Type: 
  Country: None (occurrence: None)
  Receive Date: 20110609
  Receipt Date: 20110602
  Transmission Date: 20111010
  Serious: Yes (Hospitalization)
  Sender: FDA-Public Use
  Company Number: US-MERCK-1104USA03487

PATIENT
  Age: 60 Year
  Sex: Female

DRUGS (2)
  1. VITAMINS (UNSPECIFIED) [Concomitant]
     Route: 048
     Dates: start: 20010101
  2. FOSAMAX [Suspect]
     Indication: OSTEOPOROSIS
     Route: 048
     Dates: start: 20020101, end: 20100101

REACTIONS (20)
  - GASTRIC PERFORATION [None]
  - PAIN [None]
  - RADICULITIS [None]
  - ANAEMIA POSTOPERATIVE [None]
  - SLEEP DISORDER [None]
  - SINUS TACHYCARDIA [None]
  - MACULAR DEGENERATION [None]
  - FAILURE TO THRIVE [None]
  - ANXIETY DISORDER [None]
  - CALCIUM DEFICIENCY [None]
  - GASTROINTESTINAL HAEMORRHAGE [None]
  - PEPTIC ULCER [None]
  - OSTEOARTHRITIS [None]
  - FEMUR FRACTURE [None]
  - DECREASED APPETITE [None]
  - DEPRESSION [None]
  - FALL [None]
  - PAIN IN EXTREMITY [None]
  - SPONDYLOLISTHESIS [None]
  - GASTROOESOPHAGEAL REFLUX DISEASE [None]
